FAERS Safety Report 10391725 (Version 1)
Quarter: 2014Q3

REPORT INFORMATION
  Report Type: Spontaneous
  Country: US (occurrence: US)
  Receive Date: 20140818
  Receipt Date: 20140818
  Transmission Date: 20150326
  Serious: No
  Sender: FDA-Public Use
  Company Number: US-009507513-1407USA009764

PATIENT
  Age: 15 Year
  Sex: Female
  Weight: 56.69 kg

DRUGS (2)
  1. NEXPLANON [Suspect]
     Active Substance: ETONOGESTREL
     Indication: MENSTRUAL CYCLE MANAGEMENT
     Dosage: 1 ROD/ 3 YEARS, INSERTED IN LEFT ARM
     Route: 059
     Dates: start: 20131216
  2. LORATADINE. [Concomitant]
     Active Substance: LORATADINE
     Dosage: 10 MG, ONCE A NIGHT
     Route: 048

REACTIONS (2)
  - Drug administration error [Unknown]
  - Implant site pain [Unknown]

NARRATIVE: CASE EVENT DATE: 20131216
